FAERS Safety Report 16784101 (Version 9)
Quarter: 2020Q4

REPORT INFORMATION
  Report Type: Spontaneous
  Country: CA (occurrence: CA)
  Receive Date: 20190909
  Receipt Date: 20201125
  Transmission Date: 20210113
  Serious: Yes (Other)
  Sender: FDA-Public Use
  Company Number: CA-CELLTRION INC.-2017CA003807

PATIENT

DRUGS (75)
  1. INFLECTRA [Suspect]
     Active Substance: INFLIXIMAB-DYYB
     Dosage: 5 MG/KG, EVERY 4 WEEKS
     Route: 042
     Dates: start: 20161222, end: 20171123
  2. INFLECTRA [Suspect]
     Active Substance: INFLIXIMAB-DYYB
     Dosage: 6 MG/KG (522 MG), EVERY 4 WEEKS
     Route: 042
     Dates: start: 20171220, end: 20180705
  3. INFLECTRA [Suspect]
     Active Substance: INFLIXIMAB-DYYB
     Dosage: 639.8 MG (7 MG/KG) , EVERY 4 WEEKS
     Route: 042
     Dates: start: 20180731, end: 20190528
  4. INFLECTRA [Suspect]
     Active Substance: INFLIXIMAB-DYYB
     Dosage: 639.8 MG (7 MG/KG), EVERY 4 WEEKS
     Route: 042
     Dates: start: 20180827
  5. INFLECTRA [Suspect]
     Active Substance: INFLIXIMAB-DYYB
     Dosage: 639.8 MG (7 MG/KG), (EVERY 4 WEEKS)
     Route: 042
     Dates: start: 20190110
  6. INFLECTRA [Suspect]
     Active Substance: INFLIXIMAB-DYYB
     Dosage: 639.8 MG/KG, EVERY 4 WEEKS
     Route: 042
     Dates: start: 20190425
  7. INFLECTRA [Suspect]
     Active Substance: INFLIXIMAB-DYYB
     Dosage: 940 MG, EVERY 4 WEEKS
     Route: 042
     Dates: start: 20191024
  8. INFLECTRA [Suspect]
     Active Substance: INFLIXIMAB-DYYB
     Dosage: 940 MG, EVERY 4 WEEKS
     Route: 042
     Dates: start: 20191024
  9. INFLECTRA [Suspect]
     Active Substance: INFLIXIMAB-DYYB
     Dosage: 940 MG, EVERY 4 WEEKS
     Route: 042
     Dates: start: 20200623
  10. ACETAMINOPHEN. [Concomitant]
     Active Substance: ACETAMINOPHEN
     Indication: PREMEDICATION
     Dosage: 1 G, UNK
     Route: 048
     Dates: start: 20180705
  11. HYDROCORTISONE. [Concomitant]
     Active Substance: HYDROCORTISONE
     Dosage: 100 MG, UNK
     Route: 042
     Dates: start: 20180827
  12. HYDROCORTISONE. [Concomitant]
     Active Substance: HYDROCORTISONE
     Dosage: 100 MG, UNK
     Route: 042
     Dates: start: 20191008
  13. SOLU-CORTEF [Concomitant]
     Active Substance: HYDROCORTISONE SODIUM SUCCINATE
     Dosage: 100 MG, UNK
     Route: 042
     Dates: start: 20200623, end: 20200623
  14. INFLECTRA [Suspect]
     Active Substance: INFLIXIMAB-DYYB
     Indication: PSORIATIC ARTHROPATHY
     Dosage: 446 MG, EACH 0, 2, 6 WEEKS, THEN EVERY 4 WEEKS
     Route: 042
     Dates: start: 20161221
  15. INFLECTRA [Suspect]
     Active Substance: INFLIXIMAB-DYYB
     Dosage: 6 MG/KG, EVERY 4 WEEKS
     Route: 042
     Dates: start: 20180705
  16. INFLECTRA [Suspect]
     Active Substance: INFLIXIMAB-DYYB
     Dosage: 639.8 MG (7 MG/KG), EVERY 4 WEEKS
     Route: 042
     Dates: start: 20180827
  17. ACETAMINOPHEN. [Concomitant]
     Active Substance: ACETAMINOPHEN
     Dosage: 1 G, UNK
     Route: 048
     Dates: start: 20180920
  18. ACETAMINOPHEN. [Concomitant]
     Active Substance: ACETAMINOPHEN
     Dosage: 1 G, UNK
     Route: 048
     Dates: start: 20191008
  19. CETIRIZINE [Concomitant]
     Active Substance: CETIRIZINE HYDROCHLORIDE
     Dosage: 20 MG, UNK
     Route: 048
     Dates: start: 20180827
  20. CETIRIZINE [Concomitant]
     Active Substance: CETIRIZINE HYDROCHLORIDE
     Dosage: 20 MG, UNK
     Route: 048
     Dates: start: 20180920
  21. CETIRIZINE [Concomitant]
     Active Substance: CETIRIZINE HYDROCHLORIDE
     Dosage: 20 MG, UNK
     Route: 048
     Dates: start: 20190425
  22. HYDROCORTISONE. [Concomitant]
     Active Substance: HYDROCORTISONE
     Dosage: 100 MG, UNK
     Route: 042
     Dates: start: 20190131
  23. BLEXTEN [Concomitant]
     Active Substance: BILASTINE
     Indication: PREMEDICATION
     Dosage: 20 MG, UNK
     Route: 048
     Dates: start: 20190528
  24. BLEXTEN [Concomitant]
     Active Substance: BILASTINE
     Dosage: 40 UNK, UNK
     Route: 048
     Dates: start: 20191008
  25. BLEXTEN [Concomitant]
     Active Substance: BILASTINE
     Dosage: 40 UNK, UNK
     Route: 048
     Dates: start: 20200623, end: 20200623
  26. BENADRYL [Concomitant]
     Active Substance: DIPHENHYDRAMINE HYDROCHLORIDE
     Indication: PREMEDICATION
     Dosage: UNK
     Route: 048
  27. INFLECTRA [Suspect]
     Active Substance: INFLIXIMAB-DYYB
     Dosage: 639.8 MG (7 MG/KG), EVERY 4 WEEKS
     Route: 042
     Dates: start: 20181213
  28. INFLECTRA [Suspect]
     Active Substance: INFLIXIMAB-DYYB
     Dosage: 640 MG, EVERY 6 WEEKS
     Route: 042
     Dates: start: 20190325
  29. INFLECTRA [Suspect]
     Active Substance: INFLIXIMAB-DYYB
     Dosage: 940 MG, EVERY 4 WEEKS
     Route: 042
     Dates: start: 20191024
  30. INFLECTRA [Suspect]
     Active Substance: INFLIXIMAB-DYYB
     Dosage: 940 MG, EVERY 4 WEEKS
     Route: 042
     Dates: start: 20200818
  31. ACETAMINOPHEN. [Concomitant]
     Active Substance: ACETAMINOPHEN
     Dosage: 1 G, UNK
     Route: 048
     Dates: start: 20180827
  32. HYDROCORTISONE. [Concomitant]
     Active Substance: HYDROCORTISONE
     Dosage: 100 MG, UNK
     Route: 042
     Dates: start: 20190528
  33. INFLECTRA [Suspect]
     Active Substance: INFLIXIMAB-DYYB
     Dosage: 639.8 MG (7 MG/KG), EVERY 4 WEEKS
     Route: 042
     Dates: start: 20180920
  34. INFLECTRA [Suspect]
     Active Substance: INFLIXIMAB-DYYB
     Dosage: 639.8 MG (7 MG/KG), (EVERY 4 WEEKS)
     Route: 042
     Dates: start: 20181018
  35. INFLECTRA [Suspect]
     Active Substance: INFLIXIMAB-DYYB
     Dosage: 639.8 MG (7 MG/KG), EVERY 4 WEEKS
     Route: 042
     Dates: start: 20190110
  36. INFLECTRA [Suspect]
     Active Substance: INFLIXIMAB-DYYB
     Dosage: 639.8 MG (7.15 MG/KG), EVERY 4 WEEKS
     Route: 042
     Dates: start: 20190226
  37. INFLECTRA [Suspect]
     Active Substance: INFLIXIMAB-DYYB
     Dosage: 940 MG, EVERY 4 WEEKS
     Route: 042
     Dates: start: 20190702
  38. INFLECTRA [Suspect]
     Active Substance: INFLIXIMAB-DYYB
     Dosage: 940 MG, EVERY 4 WEEKS
     Route: 042
     Dates: start: 20190827
  39. INFLECTRA [Suspect]
     Active Substance: INFLIXIMAB-DYYB
     Dosage: 940 MG, EVERY 4 WEEKS
     Route: 042
     Dates: start: 20191008
  40. ACETAMINOPHEN. [Concomitant]
     Active Substance: ACETAMINOPHEN
     Dosage: 1 G, UNK
     Route: 048
     Dates: start: 20181115
  41. ACETAMINOPHEN. [Concomitant]
     Active Substance: ACETAMINOPHEN
     Dosage: 1 G, UNK
     Route: 048
     Dates: start: 20190425
  42. INFLECTRA [Suspect]
     Active Substance: INFLIXIMAB-DYYB
     Dosage: 639.8 MG/KG, EVERY 4 WEEKS
     Route: 042
     Dates: start: 20190702
  43. INFLECTRA [Suspect]
     Active Substance: INFLIXIMAB-DYYB
     Dosage: 940 MG, EVERY 4 WEEKS
     Route: 042
     Dates: start: 20191121
  44. INFLECTRA [Suspect]
     Active Substance: INFLIXIMAB-DYYB
     Dosage: 940 MG, EVERY 4 WEEKS
     Route: 042
     Dates: start: 20201015
  45. ACETAMINOPHEN. [Concomitant]
     Active Substance: ACETAMINOPHEN
     Dosage: 1 G, UNK
     Route: 048
     Dates: start: 20181213
  46. ACETAMINOPHEN. [Concomitant]
     Active Substance: ACETAMINOPHEN
     Dosage: 1 G, UNK
     Route: 048
     Dates: start: 20190827, end: 20190827
  47. HYDROCORTISONE. [Concomitant]
     Active Substance: HYDROCORTISONE
     Dosage: 100 MG, UNK
     Route: 042
     Dates: start: 20180920
  48. TYLENOL [Concomitant]
     Active Substance: ACETAMINOPHEN
     Indication: PREMEDICATION
     Dosage: 1 G, UNK
     Route: 048
     Dates: start: 20190110
  49. REACTINE [CETIRIZINE HYDROCHLORIDE] [Concomitant]
     Active Substance: CETIRIZINE HYDROCHLORIDE
     Indication: PREMEDICATION
     Dosage: 20 MG, UNK
     Route: 048
     Dates: start: 20190110
  50. INFLECTRA [Suspect]
     Active Substance: INFLIXIMAB-DYYB
     Dosage: 639.8 MG (7.15 MG/KG), EVERY 4 WEEKS
     Route: 042
     Dates: start: 20190131
  51. CETIRIZINE [Concomitant]
     Active Substance: CETIRIZINE HYDROCHLORIDE
     Indication: PREMEDICATION
     Dosage: 20 MG, UNK
     Route: 048
     Dates: start: 20180705
  52. CETIRIZINE [Concomitant]
     Active Substance: CETIRIZINE HYDROCHLORIDE
     Dosage: 20 MG, UNK
     Route: 048
     Dates: start: 20181115
  53. HYDROCORTISONE. [Concomitant]
     Active Substance: HYDROCORTISONE
     Dosage: 100 MG, UNK
     Route: 042
     Dates: start: 20181213
  54. SOLU-CORTEF [Concomitant]
     Active Substance: HYDROCORTISONE SODIUM SUCCINATE
     Indication: PREMEDICATION
     Dosage: 100 MG, UNK
     Route: 042
     Dates: start: 20190110
  55. INFLECTRA [Suspect]
     Active Substance: INFLIXIMAB-DYYB
     Dosage: 639.8 MG/KG, EVERY 4 WEEKS
     Route: 042
     Dates: start: 20190702
  56. INFLECTRA [Suspect]
     Active Substance: INFLIXIMAB-DYYB
     Dosage: 940 MG, EVERY 4 WEEKS
     Route: 042
     Dates: start: 20200528
  57. INFLECTRA [Suspect]
     Active Substance: INFLIXIMAB-DYYB
     Dosage: 940 MG, EVERY 4 WEEKS
     Route: 042
     Dates: start: 20200610
  58. CETIRIZINE [Concomitant]
     Active Substance: CETIRIZINE HYDROCHLORIDE
     Dosage: 20 MG, UNK
     Route: 048
     Dates: start: 20181213
  59. CETIRIZINE [Concomitant]
     Active Substance: CETIRIZINE HYDROCHLORIDE
     Dosage: 20 MG, UNK
     Route: 048
     Dates: start: 20190131
  60. HYDROCORTISONE. [Concomitant]
     Active Substance: HYDROCORTISONE
     Indication: PREMEDICATION
     Dosage: 100 MG, UNK
     Route: 042
     Dates: start: 20180705
  61. HYDROCORTISONE. [Concomitant]
     Active Substance: HYDROCORTISONE
     Dosage: 100 MG, UNK
     Route: 042
     Dates: start: 20190827, end: 20190827
  62. TYLENOL [Concomitant]
     Active Substance: ACETAMINOPHEN
     Dosage: 1000 MG
     Route: 048
     Dates: start: 20200623, end: 20200623
  63. BLEXTEN [Concomitant]
     Active Substance: BILASTINE
     Dosage: 20 MG, UNK
     Route: 048
     Dates: start: 20190827, end: 20190827
  64. INFLECTRA [Suspect]
     Active Substance: INFLIXIMAB-DYYB
     Dosage: 6 MG/KG (500 MG), EVERY 4 WEEKS
     Route: 042
     Dates: start: 20180118
  65. INFLECTRA [Suspect]
     Active Substance: INFLIXIMAB-DYYB
     Dosage: 6 MG/KG (554 MG INSTEAD OF 510 MG), EVERY 4 WEEKS
     Route: 042
     Dates: start: 20180215
  66. INFLECTRA [Suspect]
     Active Substance: INFLIXIMAB-DYYB
     Dosage: 6 MG/KG, EVERY 4 WEEKS
     Route: 042
     Dates: start: 20180607
  67. INFLECTRA [Suspect]
     Active Substance: INFLIXIMAB-DYYB
     Dosage: 639.8 MG (7 MG/KG), EVERY 4 WEEKS
     Route: 042
     Dates: start: 20181115
  68. INFLECTRA [Suspect]
     Active Substance: INFLIXIMAB-DYYB
     Dosage: 639.8 MG/KG, EVERY 4 WEEKS
     Route: 042
     Dates: start: 20190528
  69. INFLECTRA [Suspect]
     Active Substance: INFLIXIMAB-DYYB
     Dosage: 940 MG, EVERY 4 WEEKS
     Route: 042
     Dates: start: 20190730
  70. INFLECTRA [Suspect]
     Active Substance: INFLIXIMAB-DYYB
     Dosage: 940 MG, EVERY 4 WEEKS
     Route: 042
     Dates: start: 20191024
  71. INFLECTRA [Suspect]
     Active Substance: INFLIXIMAB-DYYB
     Dosage: 940 MG, EVERY 4 WEEKS
     Route: 042
     Dates: start: 20191024
  72. ACETAMINOPHEN. [Concomitant]
     Active Substance: ACETAMINOPHEN
     Dosage: 1 G, UNK
     Route: 048
     Dates: start: 20190131
  73. ACETAMINOPHEN. [Concomitant]
     Active Substance: ACETAMINOPHEN
     Dosage: 1 G, UNK
     Route: 048
     Dates: start: 20190528
  74. HYDROCORTISONE. [Concomitant]
     Active Substance: HYDROCORTISONE
     Dosage: 100 MG, UNK
     Route: 042
     Dates: start: 20181115
  75. HYDROCORTISONE. [Concomitant]
     Active Substance: HYDROCORTISONE
     Dosage: 100 MG, UNK
     Route: 042
     Dates: start: 20190425

REACTIONS (24)
  - Oropharyngeal pain [Recovering/Resolving]
  - Heart rate irregular [Unknown]
  - Sputum discoloured [Recovering/Resolving]
  - Blood pressure fluctuation [Not Recovered/Not Resolved]
  - Peripheral ischaemia [Not Recovered/Not Resolved]
  - Heart rate irregular [Unknown]
  - Diarrhoea [Recovering/Resolving]
  - Condition aggravated [Not Recovered/Not Resolved]
  - Peripheral coldness [Unknown]
  - Pain in extremity [Unknown]
  - Hypertension [Unknown]
  - Off label use [Unknown]
  - Product use issue [Unknown]
  - Blister [Recovered/Resolved]
  - Sensitivity to weather change [Unknown]
  - Pallor [Unknown]
  - Rash [Recovered/Resolved]
  - Urticaria [Not Recovered/Not Resolved]
  - Inappropriate schedule of product administration [Unknown]
  - Fatigue [Recovering/Resolving]
  - Rash erythematous [Unknown]
  - Productive cough [Recovering/Resolving]
  - Weight fluctuation [Not Recovered/Not Resolved]
  - Pain [Unknown]

NARRATIVE: CASE EVENT DATE: 20170301
